FAERS Safety Report 18565216 (Version 4)
Quarter: 2021Q1

REPORT INFORMATION
  Report Type: Report from Study
  Country: CA (occurrence: CA)
  Receive Date: 20201201
  Receipt Date: 20210301
  Transmission Date: 20210419
  Serious: Yes (Death)
  Sender: FDA-Public Use
  Company Number: CA-HLS-202006723

PATIENT
  Age: 22 Year
  Sex: Female

DRUGS (1)
  1. CLOZARIL [Suspect]
     Active Substance: CLOZAPINE
     Indication: PRODUCT USED FOR UNKNOWN INDICATION
     Route: 048
     Dates: start: 20200513, end: 20201103

REACTIONS (3)
  - Completed suicide [Fatal]
  - Obsessive-compulsive disorder [Unknown]
  - Depression [Unknown]

NARRATIVE: CASE EVENT DATE: 20201103
